FAERS Safety Report 21395460 (Version 1)
Quarter: 2022Q3

REPORT INFORMATION
  Report Type: Spontaneous
  Country: DE (occurrence: DE)
  Receive Date: 20220930
  Receipt Date: 20220930
  Transmission Date: 20221026
  Serious: Yes (Hospitalization)
  Sender: FDA-Public Use
  Company Number: DE-ADRED-07551-01

PATIENT
  Age: 79 Year
  Sex: Female
  Weight: 91 kg

DRUGS (8)
  1. METOPROLOL [Suspect]
     Active Substance: METOPROLOL
     Indication: Product used for unknown indication
     Dosage: 2 DOSAGE FORMS DAILY; 23.75 MG, 1-0-1-0, UNIT DOSE : 1 DF , FREQUENCY : BD
  2. INSULIN GLARGINE [Concomitant]
     Active Substance: INSULIN GLARGINE
     Indication: Product used for unknown indication
     Dosage: 26 DOSAGE FORMS DAILY; 0-0-26-0, UNIT DOSE : 26 DF , FREQUENCY : OD
  3. TORSEMIDE [Concomitant]
     Active Substance: TORSEMIDE
     Indication: Product used for unknown indication
     Dosage: 1 DOSAGE FORMS DAILY; 100 MG, 1-0-0-0, UNIT DOSE : 1 DF , FREQUENCY : OD
  4. INSULIN HUMAN [Concomitant]
     Active Substance: INSULIN HUMAN
     Indication: Product used for unknown indication
     Dosage: 18 DOSAGE FORMS DAILY; 18-0-0-0, UNIT DOSE : 18 DF , FREQUENCY : OD
  5. SPIRONOLACTONE [Concomitant]
     Active Substance: SPIRONOLACTONE
     Indication: Product used for unknown indication
     Dosage: 1 DOSAGE FORMS DAILY; 1-0-0-0, UNIT DOSE : 1 DF , FREQUENCY : OD
  6. ASPIRIN [Concomitant]
     Active Substance: ASPIRIN
     Indication: Product used for unknown indication
     Dosage: 1 DOSAGE FORMS DAILY; 100 MG, 0-1-0-0, UNIT DOSE : 1 DF , FREQUENCY : OD
  7. PREGABALIN [Concomitant]
     Active Substance: PREGABALIN
     Indication: Product used for unknown indication
     Dosage: 1 DOSAGE FORMS DAILY; 25 MG, 0-0-1-0, UNIT DOSE : 1 DF , FREQUENCY : OD
  8. ALLOPURINOL [Concomitant]
     Active Substance: ALLOPURINOL
     Indication: Product used for unknown indication
     Dosage: 1 DOSAGE FORMS DAILY; 300 MG, 0-1-0-0, UNIT DOSE : 1 DF , FREQUENCY : OD

REACTIONS (6)
  - Gangrene [Unknown]
  - Wound [Unknown]
  - Peripheral arterial occlusive disease [Unknown]
  - Condition aggravated [Unknown]
  - Musculoskeletal pain [Unknown]
  - Wound complication [Unknown]
